FAERS Safety Report 17274845 (Version 1)
Quarter: 2020Q1

REPORT INFORMATION
  Report Type: Report from Study
  Country: FR (occurrence: FR)
  Receive Date: 20200116
  Receipt Date: 20200116
  Transmission Date: 20200409
  Serious: Yes (Other)
  Sender: FDA-Public Use
  Company Number: FR-US-PROVELL PHARMACEUTICALS LLC-9128991

PATIENT
  Sex: Female

DRUGS (1)
  1. LEVOTHYROX NF [Suspect]
     Active Substance: LEVOTHYROXINE SODIUM
     Indication: PRODUCT USED FOR UNKNOWN INDICATION
     Dosage: 250 (UNITS UNSPECIFIED)

REACTIONS (8)
  - Dizziness [Unknown]
  - Cardiac disorder [Unknown]
  - Vertigo [Unknown]
  - Arthralgia [Unknown]
  - Liver injury [Unknown]
  - Alopecia [Unknown]
  - Myalgia [Unknown]
  - Headache [Unknown]
